FAERS Safety Report 6186505-4 (Version None)
Quarter: 2009Q2

REPORT INFORMATION
  Report Type: 
  Country: None (occurrence: None)
  Receive Date: 20090512
  Receipt Date: 20090504
  Transmission Date: 20091009
  Serious: Yes (Death, Hospitalization)
  Sender: FDA-Public Use
  Company Number: US-JNJFOC-20060700846

PATIENT
  Sex: Female
  Weight: 59 kg

DRUGS (3)
  1. ORTHO EVRA [Suspect]
     Indication: DRUG USE FOR UNKNOWN INDICATION
     Route: 062
     Dates: start: 20040601
  2. VICODIN [Concomitant]
  3. ALCOHOL [Concomitant]

REACTIONS (5)
  - ANOXIC ENCEPHALOPATHY [None]
  - CARDIAC ARREST [None]
  - CARDIOMYOPATHY [None]
  - MULTI-ORGAN FAILURE [None]
  - VENOUS THROMBOSIS LIMB [None]
